FAERS Safety Report 19209474 (Version 1)
Quarter: 2021Q2

REPORT INFORMATION
  Report Type: Spontaneous
  Country: US (occurrence: US)
  Receive Date: 20210504
  Receipt Date: 20210504
  Transmission Date: 20210717
  Serious: No
  Sender: FDA-Public Use
  Company Number: NVSC2021US095562

PATIENT
  Age: 84 Year
  Sex: Female

DRUGS (1)
  1. XIIDRA [Suspect]
     Active Substance: LIFITEGRAST
     Indication: GLAUCOMA
     Dosage: UNK
     Route: 065

REACTIONS (9)
  - Pain [Unknown]
  - Dyspnoea [Unknown]
  - Joint injury [Unknown]
  - Nausea [Unknown]
  - Vision blurred [Unknown]
  - Dry eye [Unknown]
  - Eye irritation [Unknown]
  - Tremor [Unknown]
  - Incorrect dose administered [Unknown]
